FAERS Safety Report 14986259 (Version 3)
Quarter: 2018Q3

REPORT INFORMATION
  Report Type: Spontaneous
  Country: US (occurrence: US)
  Receive Date: 20180607
  Receipt Date: 20180814
  Transmission Date: 20181010
  Serious: Yes (Other)
  Sender: FDA-Public Use
  Company Number: US-NEUROCRINE BIOSCIENCES INC.-2018NBI01643

PATIENT
  Age: 64 Year
  Sex: Female
  Weight: 53.12 kg

DRUGS (10)
  1. INGREZZA [Suspect]
     Active Substance: VALBENAZINE
     Indication: TARDIVE DYSKINESIA
     Route: 048
     Dates: start: 20170928, end: 2017
  2. INGREZZA [Suspect]
     Active Substance: VALBENAZINE
     Dosage: IN THE EVENING
     Route: 048
     Dates: start: 20171010, end: 201710
  3. ZOLOFT [Concomitant]
     Active Substance: SERTRALINE HYDROCHLORIDE
     Indication: DEPRESSION
     Dosage: AT BEDTIME
  4. CYMBALTA [Concomitant]
     Active Substance: DULOXETINE HYDROCHLORIDE
     Dosage: AT NIGHT
  5. PROVIGIL [Concomitant]
     Active Substance: MODAFINIL
     Dosage: AT NIGHT
  6. SEROQUEL [Concomitant]
     Active Substance: QUETIAPINE FUMARATE
     Indication: DEPRESSION
     Dosage: 50 MG 1 TABLET IN THE MORNING, 200 MG 1 AT NIGHT
  7. KLONOPIN [Concomitant]
     Active Substance: CLONAZEPAM
     Indication: ANXIETY
     Dosage: AT NIGHT
  8. KLONOPIN [Concomitant]
     Active Substance: CLONAZEPAM
  9. INGREZZA [Suspect]
     Active Substance: VALBENAZINE
     Dosage: LOWERED TO 40 MG
     Route: 048
     Dates: start: 20171030
  10. SYNTHROID [Concomitant]
     Active Substance: LEVOTHYROXINE SODIUM

REACTIONS (8)
  - Rib fracture [Recovered/Resolved]
  - Somnolence [Recovered/Resolved]
  - Tremor [Recovered/Resolved]
  - Dizziness [Recovered/Resolved]
  - Laceration [Recovered/Resolved]
  - Balance disorder [Recovered/Resolved]
  - Drug effect incomplete [None]
  - Fall [Recovered/Resolved]

NARRATIVE: CASE EVENT DATE: 20180521
